FAERS Safety Report 14782737 (Version 1)
Quarter: 2018Q2

REPORT INFORMATION
  Report Type: Spontaneous
  Country: FR (occurrence: FR)
  Receive Date: 20180420
  Receipt Date: 20180420
  Transmission Date: 20180711
  Serious: Yes (Other)
  Sender: FDA-Public Use
  Company Number: FR-MERCK KGAA-2046131

PATIENT
  Age: 50 Year
  Sex: Male

DRUGS (1)
  1. NOVOTHYROX [Suspect]
     Active Substance: LEVOTHYROXINE SODIUM
     Indication: PRODUCT USED FOR UNKNOWN INDICATION

REACTIONS (18)
  - Loss of personal independence in daily activities [None]
  - Blood thyroid stimulating hormone increased [None]
  - Asthenia [None]
  - Impaired work ability [None]
  - Social avoidant behaviour [None]
  - Loss of libido [None]
  - Anxiety [None]
  - Insomnia [None]
  - Irritability [None]
  - Affect lability [None]
  - Disturbance in attention [None]
  - Fatigue [None]
  - Tri-iodothyronine free decreased [None]
  - Blood thyroid stimulating hormone decreased [None]
  - Weight increased [None]
  - Memory impairment [None]
  - Physical disability [None]
  - Personal relationship issue [None]

NARRATIVE: CASE EVENT DATE: 2017
